FAERS Safety Report 14072188 (Version 1)
Quarter: 2017Q4

REPORT INFORMATION
  Report Type: Spontaneous
  Country: US (occurrence: None)
  Receive Date: 20171010
  Receipt Date: 20171010
  Transmission Date: 20180321
  Serious: No
  Sender: FDA-Public Use
  Company Number: None

PATIENT
  Age: 61 Year
  Sex: Male

DRUGS (1)
  1. AMPYRA [Suspect]
     Active Substance: DALFAMPRIDINE
     Indication: MULTIPLE SCLEROSIS
     Route: 048
     Dates: start: 20120522, end: 20161001

REACTIONS (5)
  - Musculoskeletal stiffness [None]
  - Staring [None]
  - Tremor [None]
  - Seizure [None]
  - Extra dose administered [None]

NARRATIVE: CASE EVENT DATE: 20160923
